APPROVED DRUG PRODUCT: FROVATRIPTAN SUCCINATE
Active Ingredient: FROVATRIPTAN SUCCINATE
Strength: EQ 2.5MG BASE
Dosage Form/Route: TABLET;ORAL
Application: A202931 | Product #001
Applicant: PHARMOBEDIENT CONSULTING LLC
Approved: Aug 28, 2014 | RLD: No | RS: No | Type: DISCN